FAERS Safety Report 12313570 (Version 3)
Quarter: 2016Q2

REPORT INFORMATION
  Report Type: Other
  Country: FI (occurrence: FI)
  Receive Date: 20160428
  Receipt Date: 20160606
  Transmission Date: 20160815
  Serious: Yes (Other)
  Sender: FDA-Public Use
  Company Number: FI-ASTELLAS-2016US016015

PATIENT
  Age: 65 Year
  Sex: Male

DRUGS (18)
  1. PREDNISOLON [Suspect]
     Active Substance: PREDNISOLONE
     Route: 065
  2. PREDNISOLON [Suspect]
     Active Substance: PREDNISOLONE
     Route: 065
  3. SANDIMMUN NEORAL [Suspect]
     Active Substance: CYCLOSPORINE
     Dosage: UNK UNK, UNKNOWN FREQ.
     Route: 065
  4. AZATHIOPRINE. [Suspect]
     Active Substance: AZATHIOPRINE
     Indication: IMMUNOSUPPRESSION
     Dosage: UNK UNK, UNKNOWN FREQ.
     Route: 065
     Dates: start: 2011
  5. ENTOCORT [Suspect]
     Active Substance: BUDESONIDE
     Indication: IMMUNOSUPPRESSION
     Dosage: UNK UNK, UNKNOWN FREQ.
     Route: 048
     Dates: start: 20110824
  6. KALCIPOS-D [Concomitant]
     Active Substance: CALCIUM CARBONATE\CHOLECALCIFEROL
     Indication: PRODUCT USED FOR UNKNOWN INDICATION
     Route: 048
     Dates: start: 20110415
  7. PREDNISOLON [Suspect]
     Active Substance: PREDNISOLONE
     Route: 065
  8. PREDNISOLON [Suspect]
     Active Substance: PREDNISOLONE
     Route: 065
  9. MYCOPHENOLIC ACID. [Suspect]
     Active Substance: MYCOPHENOLIC ACID
     Indication: IMMUNOSUPPRESSION
     Route: 065
     Dates: start: 201503, end: 20150504
  10. PREDNISOLON [Suspect]
     Active Substance: PREDNISOLONE
     Indication: IMMUNOSUPPRESSION
     Dosage: UNK UNK, UNKNOWN FREQ.
     Route: 065
     Dates: start: 2011
  11. PREDNISOLON [Suspect]
     Active Substance: PREDNISOLONE
     Route: 065
  12. SANDIMMUN NEORAL [Suspect]
     Active Substance: CYCLOSPORINE
     Indication: IMMUNOSUPPRESSION
     Route: 048
     Dates: start: 20150602, end: 20151109
  13. PREDNISOLON [Suspect]
     Active Substance: PREDNISOLONE
     Route: 065
     Dates: start: 201412
  14. ENTOCORT [Suspect]
     Active Substance: BUDESONIDE
     Route: 065
  15. ENTOCORT [Suspect]
     Active Substance: BUDESONIDE
     Route: 065
     Dates: start: 201412
  16. ADVAGRAF [Suspect]
     Active Substance: TACROLIMUS
     Indication: IMMUNOSUPPRESSION
     Route: 048
     Dates: start: 20150518, end: 20150523
  17. MERCAPTOPURINE. [Suspect]
     Active Substance: MERCAPTOPURINE
     Indication: IMMUNOSUPPRESSION
     Dosage: UNK UNK, UNKNOWN FREQ.
     Route: 065
     Dates: start: 201305
  18. ENTOCORT [Suspect]
     Active Substance: BUDESONIDE
     Route: 065

REACTIONS (16)
  - Headache [Unknown]
  - Palpitations [Unknown]
  - Myelitis [Recovering/Resolving]
  - Renal function test abnormal [Unknown]
  - Osteoporosis [Unknown]
  - Blood pressure increased [Unknown]
  - Cognitive disorder [Recovering/Resolving]
  - Cerebral infarction [Recovering/Resolving]
  - Dizziness [Unknown]
  - Meningoradiculitis [Recovering/Resolving]
  - Varicella zoster virus infection [Recovering/Resolving]
  - Adverse drug reaction [Unknown]
  - Hepatic enzyme increased [Unknown]
  - Spinal compression fracture [Unknown]
  - Head discomfort [Unknown]
  - Epilepsy [Recovering/Resolving]

NARRATIVE: CASE EVENT DATE: 201503
